FAERS Safety Report 7384839-9 (Version None)
Quarter: 2011Q1

REPORT INFORMATION
  Report Type: 
  Country: None (occurrence: None)
  Receive Date: 20110330
  Receipt Date: 20110316
  Transmission Date: 20110831
  Serious: Yes (Life-Threatening, Other)
  Sender: FDA-Public Use
  Company Number: FR-JNJFOC-20110301638

PATIENT
  Sex: Female
  Weight: 62 kg

DRUGS (8)
  1. REMICADE [Suspect]
     Route: 042
  2. REMICADE [Suspect]
     Route: 042
  3. REMICADE [Suspect]
     Dosage: 500 MG; APPROXIMATELY 17 TOTAL INFUSIONS
     Route: 042
  4. REMICADE [Suspect]
     Indication: CROHN'S DISEASE
     Route: 042
  5. REMICADE [Suspect]
     Indication: COLITIS
     Route: 042
  6. DELURSAN [Concomitant]
  7. IMODIUM [Concomitant]
  8. REMICADE [Suspect]
     Dosage: 500 MG; APPROXIMATELY 17 TOTAL INFUSIONS
     Route: 042

REACTIONS (7)
  - OXYGEN SATURATION DECREASED [None]
  - INFUSION RELATED REACTION [None]
  - FACE OEDEMA [None]
  - CHEST PAIN [None]
  - WHEEZING [None]
  - ANAPHYLACTIC SHOCK [None]
  - DYSPNOEA [None]
